FAERS Safety Report 7879082-0 (Version None)
Quarter: 2011Q4

REPORT INFORMATION
  Report Type: 
  Country: None (occurrence: None)
  Receive Date: 20111101
  Receipt Date: 20111027
  Transmission Date: 20120403
  Serious: Yes (Death, Other)
  Sender: FDA-Public Use
  Company Number: PHHY2011JP95731

PATIENT
  Sex: Male

DRUGS (1)
  1. CLOZARIL [Suspect]
     Indication: SCHIZOPHRENIA, PARANOID TYPE
     Route: 048
     Dates: start: 20100922, end: 20111025

REACTIONS (7)
  - CLAVICLE FRACTURE [None]
  - MYELITIS [None]
  - SHOCK [None]
  - FALL [None]
  - PSYCHOTIC DISORDER [None]
  - DYSPHAGIA [None]
  - MULTI-ORGAN FAILURE [None]
